FAERS Safety Report 6483532-4 (Version None)
Quarter: 2009Q4

REPORT INFORMATION
  Report Type: 
  Country: None (occurrence: None)
  Receive Date: 20091209
  Receipt Date: 20091204
  Transmission Date: 20100525
  Serious: Yes (Other)
  Sender: FDA-Public Use
  Company Number: JP-ROCHE-662447

PATIENT
  Sex: Female
  Weight: 62 kg

DRUGS (13)
  1. HERCEPTIN [Suspect]
     Indication: BREAST CANCER METASTATIC
     Dosage: DOSE DECREASED
     Route: 041
     Dates: start: 20080606, end: 20080606
  2. HERCEPTIN [Suspect]
     Dosage: DOSE DECREASED
     Route: 041
     Dates: start: 20080613, end: 20090313
  3. HERCEPTIN [Suspect]
     Route: 041
     Dates: start: 20090327
  4. FEMARA [Suspect]
     Indication: BREAST CANCER METASTATIC
     Route: 048
     Dates: start: 20090313, end: 20091001
  5. ARIMIDEX [Suspect]
     Indication: BREAST CANCER METASTATIC
     Route: 048
     Dates: start: 20091002
  6. TAXOL [Concomitant]
     Route: 041
     Dates: start: 20080606, end: 20090220
  7. BLOPRESS [Concomitant]
     Route: 048
  8. ASPIRIN [Concomitant]
     Route: 048
  9. PRAVASTATIN [Concomitant]
     Route: 048
  10. NIFEDIPINE [Concomitant]
     Dosage: DRUG: ALLOTOP-L
     Route: 048
  11. RENIVACE [Concomitant]
     Route: 048
  12. DEPAS [Concomitant]
     Route: 048
  13. LOXONIN [Concomitant]
     Route: 048

REACTIONS (1)
  - JOINT CONTRACTURE [None]
